FAERS Safety Report 24038846 (Version 1)
Quarter: 2024Q3

REPORT INFORMATION
  Report Type: Spontaneous
  Country: EU (occurrence: None)
  Receive Date: 20240702
  Receipt Date: 20240702
  Transmission Date: 20241017
  Serious: Yes (Hospitalization)
  Sender: ETHYPHARM
  Company Number: None

PATIENT

DRUGS (4)
  1. BUPRENORPHINE HYDROCHLORIDE [Suspect]
     Active Substance: BUPRENORPHINE HYDROCHLORIDE
  2. MORPHINE SULFATE [Suspect]
     Active Substance: MORPHINE SULFATE
  3. AMPHETAMINES NOS [Suspect]
     Active Substance: AMPHETAMINES NOS
  4. COCAINE [Suspect]
     Active Substance: COCAINE

REACTIONS (5)
  - Substance abuse [Unknown]
  - Acute kidney injury [Recovering/Resolving]
  - Restlessness [Recovered/Resolved]
  - Logorrhoea [Recovered/Resolved]
  - Blood creatine phosphokinase increased [Recovering/Resolving]

NARRATIVE: CASE EVENT DATE: 20230907
